FAERS Safety Report 5960647-8 (Version None)
Quarter: 2008Q4

REPORT INFORMATION
  Report Type: 
  Country: None (occurrence: None)
  Receive Date: 20081120
  Receipt Date: 20080903
  Transmission Date: 20090506
  Serious: No
  Sender: FDA-Public Use
  Company Number: US-ABBOTT-08P-163-0474095-00

PATIENT
  Sex: Female
  Weight: 113.5 kg

DRUGS (6)
  1. BIAXIN [Suspect]
     Indication: SINUSITIS
     Route: 048
     Dates: start: 19950101
  2. IPRATROPIUM BROMIDE [Concomitant]
     Indication: CHRONIC SINUSITIS
     Dosage: 0.6 % BID NASAL SPRAYS
     Route: 045
     Dates: start: 19930101
  3. FLUTICASONE PROPIONATE [Concomitant]
     Indication: CHRONIC SINUSITIS
     Dosage: 2 NASAL SPRAYS BID
     Route: 045
     Dates: start: 19930101
  4. GABAPENTIN [Concomitant]
     Indication: NEURALGIA
     Route: 048
     Dates: start: 20010101
  5. CETIRIZINE HYDROCHLORIDE [Concomitant]
     Indication: CHRONIC SINUSITIS
     Route: 048
     Dates: start: 19980101
  6. CLONAZEPAM [Concomitant]
     Indication: ANXIETY
     Dosage: 3-4 X PER DAY
     Route: 048
     Dates: start: 19920101

REACTIONS (1)
  - PRURITUS [None]
